FAERS Safety Report 25678745 (Version 3)
Quarter: 2025Q3

REPORT INFORMATION
  Report Type: Report from Study
  Country: PR (occurrence: PR)
  Receive Date: 20250814
  Receipt Date: 20250902
  Transmission Date: 20251020
  Serious: Yes (Other)
  Sender: ABBVIE
  Company Number: PR-ABBVIE-6413093

PATIENT
  Age: 27 Year
  Sex: Female

DRUGS (2)
  1. SKYRIZI [Suspect]
     Active Substance: RISANKIZUMAB-RZAA
     Indication: Crohn^s disease
     Route: 058
     Dates: end: 202411
  2. SKYRIZI [Suspect]
     Active Substance: RISANKIZUMAB-RZAA
     Indication: Crohn^s disease
     Route: 042
     Dates: start: 202408, end: 202408

REACTIONS (10)
  - Ileostomy [Unknown]
  - Pyrexia [Recovered/Resolved]
  - Liver disorder [Recovered/Resolved]
  - Headache [Recovered/Resolved]
  - Vomiting [Recovered/Resolved]
  - Hepatitis viral test positive [Recovered/Resolved]
  - Faeces discoloured [Recovered/Resolved]
  - Haemorrhage [Recovered/Resolved]
  - Pain [Unknown]
  - Photophobia [Unknown]

NARRATIVE: CASE EVENT DATE: 20241001
